FAERS Safety Report 23012730 (Version 2)
Quarter: 2023Q4

REPORT INFORMATION
  Report Type: Spontaneous
  Country: GE (occurrence: GE)
  Receive Date: 20230930
  Receipt Date: 20231011
  Transmission Date: 20240110
  Serious: Yes (Death, Other)
  Sender: FDA-Public Use
  Company Number: GE-002147023-NVSC2023GE211329

PATIENT
  Sex: Male
  Weight: 105 kg

DRUGS (10)
  1. SACUBITRIL\VALSARTAN [Suspect]
     Active Substance: SACUBITRIL\VALSARTAN
     Indication: Cardiac failure
     Dosage: 1 DOSAGE FORM, BID (1 MONTH)
     Route: 048
     Dates: start: 202205
  2. SACUBITRIL\VALSARTAN [Suspect]
     Active Substance: SACUBITRIL\VALSARTAN
     Indication: Hypertension
  3. CAPTOPRIL [Suspect]
     Active Substance: CAPTOPRIL
     Indication: Product used for unknown indication
     Dosage: UNK
     Route: 065
  4. AMLODIPINE [Concomitant]
     Active Substance: AMLODIPINE BESYLATE
     Indication: Product used for unknown indication
     Dosage: 1 DOSAGE FORM, BID (2 YEARS)
     Route: 065
  5. SPIRONOLACTONE [Concomitant]
     Active Substance: SPIRONOLACTONE
     Indication: Product used for unknown indication
     Dosage: 1 DOSAGE FORM, BID (2 MONTHS)
     Route: 065
  6. MOXONIDINE [Concomitant]
     Active Substance: MOXONIDINE
     Indication: Product used for unknown indication
     Dosage: 1 DOSAGE FORM, BID
     Route: 065
  7. TORSEMIDE [Concomitant]
     Active Substance: TORSEMIDE
     Indication: Product used for unknown indication
     Dosage: 1 DOSAGE FORM, BID (2 MONTHS)
     Route: 065
  8. UNSPECIFIED INGREDIENT [Concomitant]
     Active Substance: UNSPECIFIED INGREDIENT
     Indication: Product used for unknown indication
     Dosage: UNK
     Route: 065
  9. INDAPAMIDE [Concomitant]
     Active Substance: INDAPAMIDE
     Indication: Product used for unknown indication
     Dosage: 1 DOSAGE FORM, BID (SEVERAL YEARS)
     Route: 065
  10. BISOPROLOL [Concomitant]
     Active Substance: BISOPROLOL\BISOPROLOL FUMARATE
     Indication: Product used for unknown indication
     Dosage: 1 DOSAGE FORM, BID (3 YEARS)
     Route: 065

REACTIONS (5)
  - Angioedema [Fatal]
  - Cough [Fatal]
  - Asphyxia [Fatal]
  - Dyspnoea [Fatal]
  - Contraindicated product administered [Fatal]
